FAERS Safety Report 15564228 (Version 1)
Quarter: 2018Q4

REPORT INFORMATION
  Report Type: Other
  Country: NO (occurrence: NO)
  Receive Date: 20181030
  Receipt Date: 20181030
  Transmission Date: 20190205
  Serious: Yes (Life-Threatening, Hospitalization)
  Sender: FDA-Public Use
  Company Number: NO-DENTSPLY-2018SCDP000474

PATIENT
  Sex: Female
  Weight: 55 kg

DRUGS (4)
  1. PANODIL [Concomitant]
     Active Substance: ACETAMINOPHEN
     Indication: SURGERY
     Dosage: 500 G, FILM-COATED TABLET
     Route: 048
     Dates: start: 20160811
  2. OXYCONTIN [Concomitant]
     Active Substance: OXYCODONE HYDROCHLORIDE
     Indication: SURGERY
     Dosage: 60 MG, PROLONGED-RELEASE TABLET
     Route: 048
     Dates: start: 20160811
  3. XYLOCAINE WITH ADRENALINE (EPINEPHRINE) [Suspect]
     Active Substance: EPINEPHRINE BITARTRATE\LIDOCAINE HYDROCHLORIDE
     Indication: RHINOPLASTY
     Dosage: 120 MG, UNK
     Route: 045
     Dates: start: 20160811
  4. CEFALOTIN [Concomitant]
     Active Substance: CEPHALOTHIN
     Indication: SURGERY
     Dosage: UNK
     Route: 042
     Dates: start: 20160811

REACTIONS (4)
  - Blood pressure increased [Recovered/Resolved]
  - Heart rate increased [Recovered/Resolved]
  - Cardiac arrest [Recovered/Resolved]
  - Stress cardiomyopathy [Recovered/Resolved]

NARRATIVE: CASE EVENT DATE: 20160811
